FAERS Safety Report 8858310 (Version 1)
Quarter: 2012Q4

REPORT INFORMATION
  Report Type: 
  Country: US (occurrence: US)
  Receive Date: 20121024
  Receipt Date: 20121024
  Transmission Date: 20130627
  Serious: No
  Sender: FDA-Public Use
  Company Number: US-AMGEN-USASP2011062087

PATIENT
  Age: 54 Year
  Sex: Female

DRUGS (6)
  1. ENBREL [Suspect]
     Indication: PRODUCT USED FOR UNKNOWN INDICATION
     Dosage: 50 mg, qwk
     Route: 058
  2. METHOTREXATE /00113802/ [Concomitant]
     Dosage: 2.5 mg, UNK
  3. LISINOPRIL [Concomitant]
     Dosage: 2.5 mg, UNK
  4. FOLIC ACID [Concomitant]
     Dosage: 1 mg, UNK
  5. MULTIVITAMIN                       /00097801/ [Concomitant]
  6. DICLOFENAC [Concomitant]
     Dosage: 25 mg, UNK

REACTIONS (2)
  - Hot flush [Unknown]
  - Hypertension [Unknown]
